FAERS Safety Report 4279444-7 (Version None)
Quarter: 2004Q1

REPORT INFORMATION
  Report Type: 
  Country: None (occurrence: None)
  Receive Date: 20040123
  Receipt Date: 20040105
  Transmission Date: 20041129
  Serious: Yes (Death)
  Sender: FDA-Public Use
  Company Number: 2003189350GB

PATIENT
  Age: 70 Year
  Sex: Female
  Weight: 66.8 kg

DRUGS (14)
  1. FRAGMIN [Suspect]
     Indication: THROMBOSIS PROPHYLAXIS
     Dosage: 2500 IU, QD, SUBCUTANEOUS; 18000 IU, QD, SUBCUTANEOUS
     Route: 058
     Dates: start: 20031122, end: 20031125
  2. FRAGMIN [Suspect]
     Indication: THROMBOSIS PROPHYLAXIS
     Dosage: 2500 IU, QD, SUBCUTANEOUS; 18000 IU, QD, SUBCUTANEOUS
     Route: 058
     Dates: start: 20031125, end: 20031127
  3. ASPIRIN [Concomitant]
  4. CLOPIDOGREL BISULFATE [Concomitant]
  5. PREDNISOLONE [Concomitant]
  6. ADIZEM [Concomitant]
  7. NICORANDIL (NICORANDIL) [Concomitant]
  8. PRAVASTATIN [Concomitant]
  9. THYROXIN (LEVOTHYROXINE SODIUM) [Concomitant]
  10. DIDRONEL PMO [Concomitant]
  11. LANSOPRAZOLE [Concomitant]
  12. SERETIDE MITE (FLUTICASONE PROPIONATE) [Concomitant]
  13. SPIRIVA [Concomitant]
  14. SALBUTAMOL (SALBUTAMOL) [Concomitant]

REACTIONS (5)
  - ABDOMINAL WALL DISORDER [None]
  - HAEMOGLOBIN DECREASED [None]
  - HAEMORRHAGE [None]
  - MEDICATION ERROR [None]
  - OVERDOSE [None]
